FAERS Safety Report 10758672 (Version 1)
Quarter: 2015Q1

REPORT INFORMATION
  Report Type: Spontaneous
  Country: JP (occurrence: JP)
  Receive Date: 20150203
  Receipt Date: 20150203
  Transmission Date: 20150721
  Serious: Yes (Other)
  Sender: FDA-Public Use
  Company Number: JP-ACTAVIS-2015-01514

PATIENT
  Age: 61 Year
  Sex: Female

DRUGS (3)
  1. MITOXANTRONE [Suspect]
     Active Substance: MITOXANTRONE HYDROCHLORIDE
     Indication: B-CELL LYMPHOMA
     Dosage: 7 MG/M2, CYCLICAL, 4 COURSES
     Route: 065
  2. RITUXIMAB [Concomitant]
     Active Substance: RITUXIMAB
     Indication: B-CELL LYMPHOMA
     Dosage: 375 MG/M2, CYCLICAL, 4 COURSES
     Route: 065
  3. FLUDARABINE [Suspect]
     Active Substance: FLUDARABINE PHOSPHATE
     Indication: B-CELL LYMPHOMA
     Dosage: 40 MG/M2, CYCLICAL, 4 COURSES
     Route: 065
     Dates: start: 200804

REACTIONS (1)
  - Chronic myeloid leukaemia [Recovered/Resolved]

NARRATIVE: CASE EVENT DATE: 201010
